FAERS Safety Report 24947895 (Version 2)
Quarter: 2025Q4

REPORT INFORMATION
  Report Type: Report from Study
  Country: US (occurrence: US)
  Receive Date: 20250210
  Receipt Date: 20251007
  Transmission Date: 20260119
  Serious: Yes (Hospitalization, Other)
  Sender: ABBVIE
  Company Number: US-ABBVIE-6124061

PATIENT
  Age: 67 Year
  Sex: Female
  Weight: 65.77 kg

DRUGS (6)
  1. LUMIGAN [Suspect]
     Active Substance: BIMATOPROST
     Indication: Glaucoma
     Dosage: FORM STRENGTH: 1 DROP
     Route: 047
     Dates: start: 2010, end: 20250704
  2. COMBIGAN [Suspect]
     Active Substance: BRIMONIDINE TARTRATE\TIMOLOL MALEATE
     Indication: Glaucoma
     Dosage: FORM STRENGTH: 2 DROP
     Route: 047
     Dates: start: 2010, end: 20250704
  3. RESTASIS [Suspect]
     Active Substance: CYCLOSPORINE
     Indication: Dry eye
     Dosage: FORM STRENGTH: 1 DROP
     Route: 047
     Dates: start: 2014, end: 20250704
  4. ELIQUIS [Concomitant]
     Active Substance: APIXABAN
     Indication: Cardiac disorder
  5. WARFARIN [Suspect]
     Active Substance: WARFARIN
     Indication: Anticoagulant therapy
     Route: 065
  6. CARVEDILOL [Concomitant]
     Active Substance: CARVEDILOL
     Indication: Cardiac disorder

REACTIONS (7)
  - Cardiac operation [Unknown]
  - Cerebral haemorrhage [Recovered/Resolved]
  - Weight decreased [Not Recovered/Not Resolved]
  - Brain operation [Unknown]
  - Mitral valve incompetence [Recovered/Resolved]
  - Headache [Unknown]
  - Craniotomy [Recovered/Resolved]

NARRATIVE: CASE EVENT DATE: 20110401
